FAERS Safety Report 18451648 (Version 3)
Quarter: 2020Q4

REPORT INFORMATION
  Report Type: Report from Study
  Country: KR (occurrence: KR)
  Receive Date: 20201102
  Receipt Date: 20201231
  Transmission Date: 20210114
  Serious: Yes (Death, Other)
  Sender: FDA-Public Use
  Company Number: KR-GLAXOSMITHKLINE-KR2020213835

PATIENT
  Age: 52 Year
  Sex: Female

DRUGS (24)
  1. SODIUM CHLORIDE. [Concomitant]
     Active Substance: SODIUM CHLORIDE
     Dosage: 1000 MILLILITER, QD
     Route: 042
     Dates: start: 20200927, end: 20200927
  2. SODIUM CHLORIDE. [Concomitant]
     Active Substance: SODIUM CHLORIDE
     Dosage: 1000 MILLILITER, QD
     Route: 042
     Dates: start: 20201005, end: 20201013
  3. SIMETHICONE (DIMETHICONE) [Concomitant]
     Active Substance: DIMETHICONE
     Indication: GASTRITIS
     Dosage: UNK UNK, QD
     Route: 048
     Dates: start: 20200918, end: 20201011
  4. NIRAPARIB [Suspect]
     Active Substance: NIRAPARIB
     Indication: OVARIAN CANCER
  5. CITOPCIN (CIPROFLOXACIN HCL) [Concomitant]
     Indication: FALLOPIAN TUBE CANCER
  6. NADOXOL [Concomitant]
     Indication: OVARIAN CANCER
     Dosage: UNK UNK, QD
     Route: 042
     Dates: start: 20201006, end: 20201006
  7. KEROMIN [Concomitant]
     Indication: OVARIAN CANCER
     Dosage: UNK
     Route: 042
     Dates: start: 20201007, end: 20201007
  8. XYZAL [Concomitant]
     Active Substance: LEVOCETIRIZINE DIHYDROCHLORIDE
     Indication: OVARIAN CANCER
     Dosage: UNK UNK, QD
     Route: 048
     Dates: start: 20201005, end: 20201011
  9. GASTER [Concomitant]
     Active Substance: FAMOTIDINE
     Indication: GASTRITIS
     Dosage: UNK
     Route: 048
     Dates: start: 20200918, end: 20201011
  10. KEROMIN [Concomitant]
     Dosage: UNK
     Route: 042
     Dates: start: 20201009, end: 20201009
  11. NIRAPARIB [Suspect]
     Active Substance: NIRAPARIB
     Indication: MALIGNANT PERITONEAL NEOPLASM
     Dosage: 20 MILLIGRAM, QD
     Route: 048
     Dates: start: 20200917, end: 20201012
  12. CITOPCIN (CIPROFLOXACIN HCL) [Concomitant]
     Indication: OVARIAN CANCER
     Dosage: 50 MILLILITER, BID
     Route: 042
     Dates: start: 20200916, end: 20200918
  13. MAGMIL [Concomitant]
     Active Substance: MAGNESIUM HYDROXIDE
     Indication: GASTRITIS
     Dosage: UNK UNK, QD
     Route: 048
     Dates: start: 20200918, end: 20201011
  14. BOLGRE [Concomitant]
     Indication: OVARIAN CANCER
     Dosage: UNK UNK, BID
     Route: 048
     Dates: start: 20201005, end: 20201011
  15. SODIUM CHLORIDE. [Concomitant]
     Active Substance: SODIUM CHLORIDE
     Indication: OVARIAN CANCER
     Dosage: 1000 MILLILITER, QD
     Route: 042
     Dates: start: 20200916, end: 20200917
  16. CITOPCIN (CIPROFLOXACIN HCL) [Concomitant]
     Indication: MALIGNANT PERITONEAL NEOPLASM
  17. FERINJECT [Concomitant]
     Active Substance: FERRIC CARBOXYMALTOSE
     Indication: OVARIAN CANCER
     Dosage: UNK UNK, QD
     Route: 065
     Dates: start: 20201005, end: 20201005
  18. BEAROBAN [Concomitant]
     Indication: SKIN MASS
     Dosage: 10 GRAM, TID
     Route: 062
     Dates: start: 20201005, end: 20201013
  19. KEROMIN [Concomitant]
     Dosage: UNK
     Route: 042
     Dates: start: 20201010, end: 20201010
  20. TAZOPERAN [Concomitant]
     Indication: OVARIAN CANCER
     Dosage: UNK UNK, TID
     Route: 042
     Dates: start: 20201011, end: 20201011
  21. DEXTROSE. [Concomitant]
     Active Substance: DEXTROSE
     Indication: DIZZINESS
     Dosage: UNK
     Route: 065
     Dates: start: 20200927, end: 20200927
  22. CEFAZOLINE [Concomitant]
     Active Substance: CEFAZOLIN SODIUM
     Indication: OVARIAN CANCER
     Dosage: UNK UNK, TID
     Route: 042
     Dates: start: 20201005, end: 20201010
  23. NIRAPARIB [Suspect]
     Active Substance: NIRAPARIB
     Indication: FALLOPIAN TUBE CANCER
  24. MAXIPIME [Concomitant]
     Active Substance: CEFEPIME HYDROCHLORIDE
     Indication: OVARIAN CANCER
     Dosage: UNK UNK, TID
     Route: 042
     Dates: start: 20201012, end: 20201012

REACTIONS (1)
  - Ovarian cancer [Fatal]

NARRATIVE: CASE EVENT DATE: 20201005
